FAERS Safety Report 6457010-2 (Version None)
Quarter: 2009Q4

REPORT INFORMATION
  Report Type: 
  Country: None (occurrence: None)
  Receive Date: 20091125
  Receipt Date: 20091117
  Transmission Date: 20100525
  Serious: Yes (Other)
  Sender: FDA-Public Use
  Company Number: US-PFIZER INC-2009279172

PATIENT
  Sex: Female
  Weight: 65.76 kg

DRUGS (3)
  1. GEODON [Suspect]
     Dosage: 20 MG, 2X/DAY
     Route: 048
     Dates: start: 20080212
  2. QUINAPRIL [Concomitant]
     Indication: HYPERTENSION
     Dosage: UNK
  3. HYDROCHLOROTHIAZIDE [Concomitant]
     Indication: HYPERTENSION
     Dosage: UNK

REACTIONS (3)
  - FEELING ABNORMAL [None]
  - MEDICATION ERROR [None]
  - PARANOIA [None]
